FAERS Safety Report 10155081 (Version 2)
Quarter: 2014Q2

REPORT INFORMATION
  Report Type: Spontaneous
  Country: CH (occurrence: CH)
  Receive Date: 20140506
  Receipt Date: 20140506
  Transmission Date: 20141212
  Serious: Yes (Hospitalization, Other)
  Sender: FDA-Public Use
  Company Number: CH-PFIZER INC-2014120638

PATIENT
  Age: 30 Year
  Sex: Female

DRUGS (4)
  1. PREGABALIN [Suspect]
     Indication: ARTHRALGIA
     Dosage: 25 MG, 2X/DAY
  2. PREGABALIN [Suspect]
     Indication: NECK PAIN
     Dosage: 50 MG, 2X/DAY
  3. PREGABALIN [Suspect]
     Dosage: 125 MG, 2X/DAY
  4. PREGABALIN [Suspect]
     Dosage: 150 MG, 2X/DAY

REACTIONS (11)
  - Vertigo [Recovered/Resolved]
  - Balance disorder [Recovered/Resolved]
  - Cerebellar syndrome [Recovered/Resolved]
  - Eye movement disorder [Recovered/Resolved]
  - Nausea [Recovered/Resolved]
  - Muscular weakness [Recovered/Resolved]
  - Hypoacusis [Recovered/Resolved]
  - Ear pain [Recovered/Resolved]
  - Fatigue [Recovered/Resolved]
  - Tremor [Recovered/Resolved]
  - Drug ineffective [Unknown]
